FAERS Safety Report 21707534 (Version 1)
Quarter: 2022Q4

REPORT INFORMATION
  Report Type: Report from Study
  Country: US (occurrence: US)
  Receive Date: 20221209
  Receipt Date: 20221209
  Transmission Date: 20230113
  Serious: Yes (Other)
  Sender: FDA-Public Use
  Company Number: US-BRISTOL-MYERS SQUIBB COMPANY-2022-025851

PATIENT
  Age: 54 Year
  Sex: Female
  Weight: 77.1 kg

DRUGS (2)
  1. REVLIMID [Suspect]
     Active Substance: LENALIDOMIDE
     Indication: Plasma cell myeloma
     Dosage: 1 CAPSULE DAILY
     Route: 048
  2. REVLIMID [Suspect]
     Active Substance: LENALIDOMIDE
     Dosage: 1 CAPSULE DAILY
     Route: 048
     Dates: start: 202201

REACTIONS (10)
  - Adverse event [Unknown]
  - Conjunctivitis [Unknown]
  - Eye pain [Unknown]
  - Off label use [Unknown]
  - Monoclonal immunoglobulin present [Unknown]
  - Tumour pain [Unknown]
  - Paraesthesia [Recovering/Resolving]
  - White blood cell count decreased [Unknown]
  - Hypertension [Unknown]
  - Neoplasm [Unknown]

NARRATIVE: CASE EVENT DATE: 20210301
